FAERS Safety Report 22039252 (Version 1)
Quarter: 2023Q1

REPORT INFORMATION
  Report Type: Spontaneous
  Country: US (occurrence: None)
  Receive Date: 20230227
  Receipt Date: 20230227
  Transmission Date: 20230418
  Serious: Yes (Life-Threatening, Hospitalization, Other)
  Sender: FDA-Public Use
  Company Number: US-Hikma Pharmaceuticals USA Inc.-US-H14001-23-00514

PATIENT
  Age: 22 Year
  Sex: Female

DRUGS (6)
  1. DEXAMETHASONE [Suspect]
     Active Substance: DEXAMETHASONE
     Indication: T-cell type acute leukaemia
     Dosage: UNKNOWN
     Route: 037
     Dates: start: 20220616
  2. PEGASPARGASE [Suspect]
     Active Substance: PEGASPARGASE
     Indication: T-cell type acute leukaemia
     Dosage: UNKNOWN
     Route: 037
     Dates: start: 20220616
  3. CYTARABINE [Concomitant]
     Active Substance: CYTARABINE
     Indication: T-cell type acute leukaemia
     Dosage: UNKNOWN
     Route: 037
     Dates: start: 20220616
  4. METHOTREXATE [Concomitant]
     Active Substance: METHOTREXATE
     Indication: T-cell type acute leukaemia
     Dosage: UNKNOWN
     Route: 037
     Dates: start: 20220616
  5. DAUNORUBICIN [Concomitant]
     Active Substance: DAUNORUBICIN
     Indication: T-cell type acute leukaemia
     Dosage: UNKNOWN
     Route: 037
     Dates: start: 20220616
  6. VINCRISTINE [Concomitant]
     Active Substance: VINCRISTINE
     Indication: T-cell type acute leukaemia
     Dosage: UNKNOWN
     Route: 037
     Dates: start: 20220616

REACTIONS (4)
  - Hyperglycaemic hyperosmolar nonketotic syndrome [Recovering/Resolving]
  - Acute respiratory failure [Recovered/Resolved]
  - Hypovolaemic shock [Recovered/Resolved]
  - Mental disorder [Recovered/Resolved]

NARRATIVE: CASE EVENT DATE: 20220101
